FAERS Safety Report 7512252-X (Version None)
Quarter: 2011Q2

REPORT INFORMATION
  Report Type: 
  Country: None (occurrence: None)
  Receive Date: 20110531
  Receipt Date: 20110518
  Transmission Date: 20111010
  Serious: Yes (Hospitalization, Other)
  Sender: FDA-Public Use
  Company Number: US-ACTELION-A-US2011-47708

PATIENT

DRUGS (13)
  1. ASPIRIN [Concomitant]
  2. ACETAMINOPHEN AND HYDROCODONE BITARTRATE [Concomitant]
  3. MINOCYCLINE HCL [Concomitant]
  4. TRACLEER [Suspect]
     Dosage: 62.5MG, BID
     Route: 048
     Dates: start: 20110204, end: 20110305
  5. TRACLEER [Suspect]
     Indication: PULMONARY ARTERIAL HYPERTENSION
     Dosage: 125 MG, BID
     Route: 048
     Dates: start: 20110306, end: 20110511
  6. REVATIO [Concomitant]
  7. WARFARIN SODIUM [Concomitant]
  8. LEVOTHYROXINE SODIUM [Concomitant]
  9. PRILOSEC [Concomitant]
  10. FUROSEMIDE [Concomitant]
  11. M.V.I. [Concomitant]
  12. GLIPIZIDE [Concomitant]
  13. POTASSIUM CHLORIDE [Concomitant]

REACTIONS (5)
  - WEIGHT INCREASED [None]
  - PULMONARY HYPERTENSION [None]
  - EXERCISE TOLERANCE DECREASED [None]
  - OEDEMA PERIPHERAL [None]
  - ANAEMIA [None]
